FAERS Safety Report 8830318 (Version 5)
Quarter: 2013Q3

REPORT INFORMATION
  Report Type: Spontaneous
  Country: US (occurrence: US)
  Receive Date: 20121009
  Receipt Date: 20130716
  Transmission Date: 20140515
  Serious: Yes (Hospitalization, Disabling, Other)
  Sender: FDA-Public Use
  Company Number: US-009507513-1210USA002331

PATIENT
  Sex: Female
  Weight: 74.83 kg

DRUGS (1)
  1. NUVARING [Suspect]
     Indication: CONTRACEPTION
     Dosage: UNK
     Route: 067
     Dates: start: 200605, end: 2009

REACTIONS (6)
  - Abortion spontaneous [Recovered/Resolved]
  - Pulmonary embolism [Recovered/Resolved]
  - Exposure during pregnancy [Recovered/Resolved]
  - Rotator cuff syndrome [Unknown]
  - Muscle tightness [Unknown]
  - Musculoskeletal chest pain [Unknown]
